FAERS Safety Report 22160128 (Version 1)
Quarter: 2023Q1

REPORT INFORMATION
  Report Type: Spontaneous
  Country: US (occurrence: None)
  Receive Date: 20230330
  Receipt Date: 20230330
  Transmission Date: 20230417
  Serious: Yes (Hospitalization, Other)
  Sender: FDA-Public Use
  Company Number: None

PATIENT
  Age: 28 Year
  Sex: Female
  Weight: 90 kg

DRUGS (2)
  1. HAILEY 1.5/30 [Suspect]
     Active Substance: ETHINYL ESTRADIOL\NORETHINDRONE ACETATE
     Indication: Oral contraception
     Dates: start: 20230125, end: 20230131
  2. LEXAPRO [Concomitant]
     Active Substance: ESCITALOPRAM OXALATE

REACTIONS (8)
  - Fall [None]
  - Anxiety [None]
  - Dysstasia [None]
  - Aphasia [None]
  - Feeling drunk [None]
  - Visual impairment [None]
  - Feeling abnormal [None]
  - Seizure [None]

NARRATIVE: CASE EVENT DATE: 20230131
